FAERS Safety Report 8049157-4 (Version None)
Quarter: 2012Q1

REPORT INFORMATION
  Report Type: 
  Country: None (occurrence: None)
  Receive Date: 20120117
  Receipt Date: 20120110
  Transmission Date: 20120608
  Serious: Yes (Other)
  Sender: FDA-Public Use
  Company Number: CA-JNJFOC-20110900858

PATIENT
  Sex: Male

DRUGS (1)
  1. LISTERINE ORIGINAL MOUTHWASH [Suspect]
     Indication: POISONING
     Dosage: REGULARLY
     Route: 048

REACTIONS (4)
  - CONVULSION [None]
  - PRODUCT QUALITY ISSUE [None]
  - DRUG ABUSE [None]
  - INCORRECT ROUTE OF DRUG ADMINISTRATION [None]
